FAERS Safety Report 5370531-9 (Version None)
Quarter: 2007Q2

REPORT INFORMATION
  Report Type: 
  Country: None (occurrence: None)
  Receive Date: 20070626
  Receipt Date: 20070612
  Transmission Date: 20071010
  Serious: Yes (Hospitalization)
  Sender: FDA-Public Use
  Company Number: US-ELI_LILLY_AND_COMPANY-US200706002823

PATIENT
  Age: 80 Year
  Sex: Male
  Weight: 58.956 kg

DRUGS (7)
  1. FORTEO [Suspect]
     Indication: COMPRESSION FRACTURE
     Dates: start: 20070101
  2. ASPIRIN [Concomitant]
     Dosage: 81 MG, DAILY (1/D)
  3. TOPROL-XL [Concomitant]
     Dosage: 25 MG, DAILY (1/D)
  4. LISINOPRIL [Concomitant]
     Dosage: 2.5 MG, UNK
  5. LIPITOR [Concomitant]
     Dosage: 10 MG, EACH EVENING
  6. ACTONEL [Concomitant]
     Dosage: UNK, WEEKLY (1/W)
  7. FLOMAX [Concomitant]
     Indication: PROSTATE EXAMINATION ABNORMAL
     Dates: start: 20070601

REACTIONS (5)
  - ABDOMINAL PAIN UPPER [None]
  - HICCUPS [None]
  - MEMORY IMPAIRMENT [None]
  - MOOD ALTERED [None]
  - WEIGHT DECREASED [None]
